FAERS Safety Report 16243792 (Version 2)
Quarter: 2019Q2

REPORT INFORMATION
  Report Type: Spontaneous
  Country: EG (occurrence: EG)
  Receive Date: 20190426
  Receipt Date: 20190628
  Transmission Date: 20190711
  Serious: Yes (Death, Hospitalization, Other)
  Sender: FDA-Public Use
  Company Number: EG-SA-2019SA112914

PATIENT
  Age: 8 Year
  Sex: Male

DRUGS (5)
  1. IMIGLUCERASE [Suspect]
     Active Substance: IMIGLUCERASE
     Indication: GAUCHER^S DISEASE TYPE III
     Dosage: 30 U
     Route: 041
  2. IMIGLUCERASE [Suspect]
     Active Substance: IMIGLUCERASE
     Indication: GAUCHER^S DISEASE TYPE II
     Dosage: 60 U, UNK
     Route: 041
  3. CALCIUM [Concomitant]
     Active Substance: CALCIUM
     Route: 065
  4. IRON [Concomitant]
     Active Substance: IRON
     Route: 065
  5. VITAMIN D [VITAMIN D NOS] [Concomitant]
     Active Substance: VITAMIN D NOS
     Route: 065

REACTIONS (4)
  - Dyspnoea [Fatal]
  - Seizure [Fatal]
  - Dysphagia [Fatal]
  - Respiratory failure [Fatal]
